FAERS Safety Report 9499554 (Version 1)
Quarter: 2013Q3

REPORT INFORMATION
  Report Type: Spontaneous
  Country: US (occurrence: None)
  Receive Date: 20130903
  Receipt Date: 20130903
  Transmission Date: 20140515
  Serious: No
  Sender: FDA-Public Use
  Company Number: None

PATIENT
  Age: 78 Year
  Sex: Male
  Weight: 62.1 kg

DRUGS (2)
  1. WARFARIN [Suspect]
     Indication: ATRIAL FIBRILLATION
     Route: 048
     Dates: start: 20040501, end: 20130526
  2. ENOXAPARIN [Suspect]
     Indication: ATRIAL FIBRILLATION
     Route: 058
     Dates: start: 20130625, end: 20130627

REACTIONS (1)
  - Retroperitoneal haemorrhage [None]
